FAERS Safety Report 9444361 (Version 3)
Quarter: 2013Q4

REPORT INFORMATION
  Report Type: Spontaneous
  Country: DE (occurrence: DE)
  Receive Date: 20130807
  Receipt Date: 20131001
  Transmission Date: 20140711
  Serious: Yes (Life-Threatening, Other)
  Sender: FDA-Public Use
  Company Number: DE-JNJFOC-20130717422

PATIENT
  Age: 73 Year
  Sex: Male

DRUGS (4)
  1. XARELTO [Suspect]
     Indication: THROMBOSIS PROPHYLAXIS
     Route: 048
     Dates: start: 20121220, end: 20130205
  2. XARELTO [Suspect]
     Indication: DEEP VEIN THROMBOSIS
     Route: 048
     Dates: start: 20121220, end: 20130205
  3. ACC ACUTE [Concomitant]
     Dosage: 100 (UNITS UNSPECIFIED)
     Route: 065
  4. RAMIPRIL [Concomitant]
     Route: 065

REACTIONS (2)
  - Haemoglobin decreased [Recovered/Resolved]
  - Brain stem ischaemia [Unknown]
